FAERS Safety Report 13063131 (Version 1)
Quarter: 2016Q4

REPORT INFORMATION
  Report Type: Report from Study
  Country: US (occurrence: US)
  Receive Date: 20161227
  Receipt Date: 20161227
  Transmission Date: 20170207
  Serious: Yes (Other)
  Sender: FDA-Public Use
  Company Number: US-ROCHE-1870579

PATIENT

DRUGS (3)
  1. BEVACIZUMAB [Suspect]
     Active Substance: BEVACIZUMAB
     Indication: NEUROBLASTOMA RECURRENT
     Dosage: TOTAL COURSES COMPLETED : 9
     Route: 042
     Dates: start: 20130717
  2. ZOLEDRONIC ACID [Suspect]
     Active Substance: ZOLEDRONIC ACID
     Indication: NEUROBLASTOMA RECURRENT
     Dosage: TOTAL COURSES COMPLETED 9
     Route: 042
     Dates: start: 20130717
  3. CYTOXAN [Suspect]
     Active Substance: CYCLOPHOSPHAMIDE
     Indication: NEUROBLASTOMA RECURRENT
     Dosage: TOTAL COURSES COMPLETED 9
     Route: 042
     Dates: start: 20130717

REACTIONS (3)
  - Haematotoxicity [Unknown]
  - Coagulopathy [Unknown]
  - Bone marrow toxicity [Unknown]
